FAERS Safety Report 23399758 (Version 1)
Quarter: 2024Q1

REPORT INFORMATION
  Report Type: Spontaneous
  Country: AU (occurrence: AU)
  Receive Date: 20240114
  Receipt Date: 20240114
  Transmission Date: 20240410
  Serious: Yes (Hospitalization)
  Sender: FDA-Public Use
  Company Number: AU-AMGEN-AUSCT2024005887

PATIENT
  Age: 70 Year
  Sex: Female

DRUGS (19)
  1. BEVACIZUMAB [Suspect]
     Active Substance: BEVACIZUMAB
     Indication: Ovarian cancer recurrent
     Dosage: 820 MILLIGRAM (10 MG/KG), Q2WK
     Route: 042
     Dates: start: 20230113, end: 20230324
  2. BEVACIZUMAB [Suspect]
     Active Substance: BEVACIZUMAB
     Dosage: 10 MILLIGRAM/KILOGRAM, Q2WK
     Route: 042
     Dates: start: 20230428, end: 20230526
  3. PEMBROLIZUMAB [Suspect]
     Active Substance: PEMBROLIZUMAB
     Indication: Ovarian cancer recurrent
     Dosage: 400 MILLIGRAM, Q6WK
     Route: 042
     Dates: start: 20230113, end: 20230224
  4. PEMBROLIZUMAB [Suspect]
     Active Substance: PEMBROLIZUMAB
     Dosage: 400 MILLIGRAM, Q6WK
     Route: 042
     Dates: start: 20230428, end: 20230428
  5. PACLITAXEL [Suspect]
     Active Substance: PACLITAXEL
     Indication: Ovarian cancer recurrent
     Dosage: 80 MILLIGRAM/SQ. METER, Q3WK (DOSE ADMINISTRED 140 MG ON DAY 1, 8 AND 15)
     Route: 042
     Dates: start: 20230113, end: 20230331
  6. DERMAID [Concomitant]
     Indication: Rash pruritic
     Dosage: 1 DOSAGE FORM, QD
     Route: 061
     Dates: start: 20230203, end: 20230502
  7. OXYCODONE HYDROCHLORIDE [Concomitant]
     Active Substance: OXYCODONE HYDROCHLORIDE
     Indication: Abdominal pain
     Dosage: UNK
     Route: 048
     Dates: start: 202110, end: 20230411
  8. LYRICA [Concomitant]
     Active Substance: PREGABALIN
     Indication: Neuropathy peripheral
     Dosage: UNK
  9. LYRICA [Concomitant]
     Active Substance: PREGABALIN
     Indication: Cancer pain
     Dosage: 225 MILLIGRAM, QD
     Route: 048
     Dates: start: 20230217, end: 20230418
  10. MAXOLON [Concomitant]
     Active Substance: METOCLOPRAMIDE HYDROCHLORIDE
     Indication: Nausea
     Dosage: UNK
     Route: 048
     Dates: start: 20230219
  11. MESALAMINE [Concomitant]
     Active Substance: MESALAMINE
     Indication: Prophylaxis
     Dosage: 1.2 GRAM, QD
     Route: 048
     Dates: start: 202206
  12. OXYCONTIN [Concomitant]
     Active Substance: OXYCODONE HYDROCHLORIDE
     Indication: Cancer pain
     Dosage: UNK
     Route: 048
     Dates: start: 20230201, end: 20230408
  13. PANADOL [Concomitant]
     Active Substance: ACETAMINOPHEN
     Indication: Osteoarthritis
     Dosage: UNK UNK, QD
     Route: 048
     Dates: start: 202301
  14. APIXABAN [Concomitant]
     Active Substance: APIXABAN
     Indication: Thrombosis prophylaxis
     Dosage: 2 DOSAGE FORM, QD
     Route: 048
     Dates: start: 201707
  15. ESOMEPRAZOLE [Concomitant]
     Active Substance: ESOMEPRAZOLE
     Indication: Gastrooesophageal reflux disease
     Dosage: 40 MILLIGRAM, QD
     Route: 048
     Dates: start: 201910
  16. METFORMIN [Concomitant]
     Active Substance: METFORMIN HYDROCHLORIDE
     Indication: Type 2 diabetes mellitus
     Dosage: 1 GRAM, QD
     Route: 048
     Dates: start: 201911
  17. MOVICOL [Concomitant]
     Active Substance: POLYETHYLENE GLYCOL 3350\POTASSIUM CHLORIDE\SODIUM BICARBONATE\SODIUM CHLORIDE
  18. MAGNESIUM ASPARTATE [Concomitant]
     Active Substance: MAGNESIUM ASPARTATE
     Indication: Blood magnesium decreased
     Dosage: 2 DOSAGE FORM, QD
     Route: 048
     Dates: start: 20230128
  19. IBUPROFEN [Concomitant]
     Active Substance: IBUPROFEN

REACTIONS (2)
  - Immune-mediated neuropathy [Not Recovered/Not Resolved]
  - Abdominal pain [Recovered/Resolved]

NARRATIVE: CASE EVENT DATE: 20230405
